FAERS Safety Report 14278901 (Version 5)
Quarter: 2018Q2

REPORT INFORMATION
  Report Type: Report from Study
  Country: DE (occurrence: DE)
  Receive Date: 20171212
  Receipt Date: 20180417
  Transmission Date: 20180711
  Serious: Yes (Other)
  Sender: FDA-Public Use
  Company Number: DE-PFIZER INC-2017523902

PATIENT
  Age: 63 Year
  Sex: Female
  Weight: 80 kg

DRUGS (5)
  1. DOCETAXEL. [Suspect]
     Active Substance: DOCETAXEL
     Dosage: 168 MG (LAST DOSE BEFORE EVENT BLOODY NAIL)
     Route: 042
     Dates: end: 20171117
  2. PERTUZUMAB. [Suspect]
     Active Substance: PERTUZUMAB
     Indication: HER-2 POSITIVE BREAST CANCER
     Dosage: 420 MG, EVERY 3 WEEKS
     Route: 042
     Dates: start: 20170922
  3. DOCETAXEL. [Suspect]
     Active Substance: DOCETAXEL
     Indication: HER-2 POSITIVE BREAST CANCER
     Dosage: 157 MG, EVERY 3 WEEKS
     Route: 042
     Dates: start: 20170908
  4. HERCEPTIN [Suspect]
     Active Substance: TRASTUZUMAB
     Indication: HER-2 POSITIVE BREAST CANCER
     Dosage: 480 MG, EVERY 3 WEEKS
     Route: 042
     Dates: start: 20170901, end: 20180131
  5. HERCEPTIN [Suspect]
     Active Substance: TRASTUZUMAB
     Dosage: 420 MG, EVERY 3 WEEKS
     Route: 042
     Dates: start: 20170922, end: 20180131

REACTIONS (10)
  - Neoplasm progression [Not Recovered/Not Resolved]
  - Nail bed bleeding [Not Recovered/Not Resolved]
  - Drug ineffective [Unknown]
  - Sensory disturbance [Not Recovered/Not Resolved]
  - Headache [Recovered/Resolved]
  - Nocturia [Not Recovered/Not Resolved]
  - Dysuria [Recovered/Resolved]
  - Muscular weakness [Recovered/Resolved]
  - Dyspnoea [Recovered/Resolved]
  - Polyneuropathy [Not Recovered/Not Resolved]

NARRATIVE: CASE EVENT DATE: 20170901
